FAERS Safety Report 21787337 (Version 4)
Quarter: 2023Q1

REPORT INFORMATION
  Report Type: Other
  Country: US (occurrence: None)
  Receive Date: 20221228
  Receipt Date: 20230110
  Transmission Date: 20230417
  Serious: Yes (Death)
  Sender: FDA-Public Use
  Company Number: US-ROCHE-3252505

PATIENT
  Age: 80 Year
  Sex: Female

DRUGS (22)
  1. ACTEMRA [Suspect]
     Active Substance: TOCILIZUMAB
     Indication: Giant cell arteritis
     Dosage: FORM OF ADMIN-80 MG VIAL
     Route: 042
  2. ACTEMRA [Suspect]
     Active Substance: TOCILIZUMAB
     Dosage: FORM OF ADMIN-200 MG VIAL
     Route: 042
  3. VENLAFAXINE [Concomitant]
     Active Substance: VENLAFAXINE HYDROCHLORIDE
     Dosage: TAKE 1 TABLET BY ORAL ROUTE TWO TIME EVERYDAY WITH FOOD
     Route: 048
  4. SIMVASTATIN [Concomitant]
     Active Substance: SIMVASTATIN
     Dosage: TAKE ONE TABLET BY ORAL ROUTE EVERY DAY IN THE EVENING
     Route: 048
  5. PREDNISONE [Concomitant]
     Active Substance: PREDNISONE
     Dosage: TAKE TWO TABLETS ORAL DAILY THROUGH 9/15, 1.5 TABLETS ORAL DAILY THROUGH 9/30 THE ONE TABLET ORAL DA
     Route: 048
  6. OXYBUTYNIN CHLORIDE [Concomitant]
     Active Substance: OXYBUTYNIN CHLORIDE
     Dosage: ER 15 MG TABLET, EXTENDED RELEASE 24 HR, TAKE 1 TABLET BY ORAL EVERYDAY
     Route: 048
  7. OMEPRAZOLE [Concomitant]
     Active Substance: OMEPRAZOLE
     Dosage: TAKE ONE CAPSULE BY ORAL ROUTE EVERY DAY BEFORE A MEAL
     Route: 048
  8. METOPROLOL SUCCINATE [Concomitant]
     Active Substance: METOPROLOL SUCCINATE
     Dosage: 50 MG TABLET EXTENDED RELEASE 24 HR, TAKE TABLET BY ORAL ROUTE EVERY DAY
     Route: 048
  9. MELATONIN [Concomitant]
     Active Substance: MELATONIN
     Dosage: TAKE ONE TABLET BY ORAL ROUTE EVERY BEDTIME
     Route: 048
  10. LOSARTAN [Concomitant]
     Active Substance: LOSARTAN
     Dosage: TAKE ONE TABLET ORAL ROUTE EVERYDAY
     Route: 048
  11. IBUPROFEN [Concomitant]
     Active Substance: IBUPROFEN
     Dosage: TAKE TWO TABLET BY ORAL ROUTE EVERYDAY AS NEEDED WITH FOOD
     Route: 048
  12. HUMALOG [Concomitant]
     Active Substance: INSULIN LISPRO
     Dosage: HUMALOG U 100 INSULIN , 100 UNIT/ML SUBCUTANEOUS SOLUTION, INJECT BY SUBCUTANEOUS ROUTE PER PRESCRIB
     Route: 058
  13. GLUCOSAMINE SULFATE [Concomitant]
     Active Substance: GLUCOSAMINE SULFATE
  14. DOXYCYCLINE HYCLATE [Concomitant]
     Active Substance: DOXYCYCLINE HYCLATE
     Dosage: TAKE 1 CAPSULE BY ORAL ROUTE EVERY 12 HOURS
     Route: 048
  15. CYANOCOBALAMIN [Concomitant]
     Active Substance: CYANOCOBALAMIN
     Dosage: CYANOCOBALAMIN (VITAMIN B 12)
     Route: 048
  16. CLOPIDOGREL [Concomitant]
     Active Substance: CLOPIDOGREL BISULFATE
     Route: 048
  17. BIOTIN [Concomitant]
     Active Substance: BIOTIN
  18. BAQSIMI [Concomitant]
     Active Substance: GLUCAGON
     Dosage: ACTUATION NASAL SPRAY, 1 SPRAY BY INTRANASAL ROUTE INTO 1 NOSTRIL ONCE MAY REPEAT DOSE IN 15 MINUTES
     Route: 045
  19. BACTRIM DS [Concomitant]
     Active Substance: SULFAMETHOXAZOLE\TRIMETHOPRIM
     Dosage: BACTRIM DS 800 MG- 160 MG TABLET, TAKE 1 TABLET BY ORAL EVERY DAY
     Route: 048
  20. AMLODIPINE [Concomitant]
     Active Substance: AMLODIPINE BESYLATE
     Route: 048
  21. ACETAMINOPHEN [Concomitant]
     Active Substance: ACETAMINOPHEN
     Dosage: TAKE TWO TABLET BY ORAL ROUTE , EVERY 6 HOURS AS NEEDED
     Route: 048
  22. METFORMIN [Concomitant]
     Active Substance: METFORMIN HYDROCHLORIDE
     Dosage: TAKE 1 TABLET BY ORAL ROUTE 2 TIMES EVERY DAY WITH MORNING AND EVENING MEALS.
     Route: 048

REACTIONS (1)
  - Death [Fatal]
